FAERS Safety Report 7506644-2 (Version None)
Quarter: 2011Q2

REPORT INFORMATION
  Report Type: 
  Country: None (occurrence: None)
  Receive Date: 20110526
  Receipt Date: 20110524
  Transmission Date: 20111010
  Serious: Yes (Other)
  Sender: FDA-Public Use
  Company Number: US-PFIZER INC-2011112638

PATIENT
  Sex: Female

DRUGS (3)
  1. LYRICA [Suspect]
     Indication: TRIGEMINAL NEURALGIA
     Dosage: 100 MG, 3X/DAY
     Route: 048
     Dates: start: 20100901
  2. PLAQUENIL [Concomitant]
     Dosage: UNK
  3. ASCORBIC ACID [Suspect]
     Indication: ILL-DEFINED DISORDER
     Dosage: 2000 TO 3000 MCG ONCE A DAY

REACTIONS (2)
  - SKIN IRRITATION [None]
  - LABORATORY TEST ABNORMAL [None]
